FAERS Safety Report 4344861-3 (Version None)
Quarter: 2004Q2

REPORT INFORMATION
  Report Type: 
  Country: None (occurrence: None)
  Receive Date: 20040423
  Receipt Date: 20030617
  Transmission Date: 20050107
  Serious: Yes (Hospitalization, Other)
  Sender: FDA-Public Use
  Company Number: US-GLAXOSMITHKLINE-A0412689A

PATIENT
  Age: 9 Year
  Sex: Male
  Weight: 30.7 kg

DRUGS (7)
  1. ZOFRAN [Suspect]
     Indication: VOMITING
     Dosage: 4MG SEE DOSAGE TEXT
     Route: 042
     Dates: start: 20030614
  2. ZOFRAN [Suspect]
     Indication: NAUSEA
     Dosage: 4MG SINGLE DOSE
     Route: 048
  3. TORADOL [Concomitant]
     Indication: HEADACHE
     Dosage: 15MG PER DAY
     Route: 030
     Dates: start: 20030614
  4. ATIVAN [Concomitant]
     Dosage: 3MG SINGLE DOSE
     Route: 065
     Dates: start: 20030614
  5. MORPHINE [Concomitant]
     Dosage: 3MG UNKNOWN
     Route: 065
  6. AMOXIL [Concomitant]
     Indication: PHARYNGITIS
     Dosage: 400MG TWICE PER DAY
     Dates: start: 20030520
  7. NIFEDIPINE [Concomitant]
     Dates: start: 20030614, end: 20030614

REACTIONS (1)
  - GRAND MAL CONVULSION [None]
